FAERS Safety Report 4276164-X (Version None)
Quarter: 2004Q1

REPORT INFORMATION
  Report Type: 
  Country: None (occurrence: None)
  Receive Date: 20040121
  Receipt Date: 20031202
  Transmission Date: 20041129
  Serious: No
  Sender: FDA-Public Use
  Company Number: US-GLAXOSMITHKLINE-A0441647A

PATIENT
  Age: 54 Year
  Sex: Female

DRUGS (5)
  1. VALTREX [Suspect]
     Indication: APHTHOUS STOMATITIS
     Dosage: 1G PER DAY
     Route: 048
     Dates: start: 20031130
  2. TRANDATE [Concomitant]
  3. NORVASC [Concomitant]
  4. AVANDAMET [Concomitant]
  5. CELEBREX [Concomitant]

REACTIONS (1)
  - DIARRHOEA [None]
